FAERS Safety Report 5194270-2 (Version None)
Quarter: 2006Q4

REPORT INFORMATION
  Report Type: 
  Country: None (occurrence: None)
  Receive Date: 20061228
  Receipt Date: 20061219
  Transmission Date: 20070319
  Serious: Yes (Other)
  Sender: FDA-Public Use
  Company Number: ES-ABBOTT-06P-144-0353538-00

PATIENT
  Age: 46 Year
  Sex: Male

DRUGS (3)
  1. RITONAVIR [Suspect]
     Indication: ANTIVIRAL PROPHYLAXIS
     Dosage: NOT REPORTED
     Dates: start: 19960101
  2. LAMIVUDINE [Suspect]
     Indication: ANTIVIRAL PROPHYLAXIS
     Dosage: NOT REPORTED
     Dates: start: 19960101
  3. ZIDOVUDINE [Suspect]
     Indication: ANTIVIRAL PROPHYLAXIS
     Dosage: NOT REPORTED
     Dates: start: 19960101

REACTIONS (1)
  - OSTEONECROSIS [None]
